FAERS Safety Report 8833126 (Version 2)
Quarter: 2014Q2

REPORT INFORMATION
  Report Type: Spontaneous
  Country: CN (occurrence: CN)
  Receive Date: 20121010
  Receipt Date: 20140605
  Transmission Date: 20141212
  Serious: Yes (Hospitalization, Other)
  Sender: FDA-Public Use
  Company Number: CN-JNJFOC-20121000755

PATIENT
  Age: 59 Year
  Sex: Female

DRUGS (4)
  1. REMICADE [Suspect]
     Indication: RHEUMATOID ARTHRITIS
     Route: 042
     Dates: start: 20120928
  2. REMICADE [Suspect]
     Indication: RHEUMATOID ARTHRITIS
     Route: 042
  3. REMICADE [Suspect]
     Indication: RHEUMATOID ARTHRITIS
     Dosage: STRENGTH: 100 MG (DOSAGE WAS NOT REPORTED) AT WEEK 0, 2, 6, 8. 8 TIMES IN TOTAL.
     Route: 042
     Dates: start: 2006
  4. METHOTREXATE [Concomitant]
     Route: 065

REACTIONS (2)
  - Cervix carcinoma [Recovered/Resolved]
  - Drug ineffective [Unknown]
